FAERS Safety Report 15419704 (Version 1)
Quarter: 2018Q3

REPORT INFORMATION
  Report Type: Spontaneous
  Country: GB (occurrence: GB)
  Receive Date: 20180924
  Receipt Date: 20180924
  Transmission Date: 20181010
  Serious: Yes (Other)
  Sender: FDA-Public Use
  Company Number: GB-TEVA-2018-GB-957914

PATIENT
  Age: 69 Year
  Sex: Male
  Weight: 76.2 kg

DRUGS (2)
  1. TAMSULOSIN HYDROCHLORIDE. [Suspect]
     Active Substance: TAMSULOSIN HYDROCHLORIDE
     Indication: NEPHROLITHIASIS
     Dosage: 1 DOSAGE FORMS DAILY; EVERY MORNING.
     Route: 048
     Dates: start: 20180815, end: 20180826
  2. PARACETAMOL [Concomitant]
     Active Substance: ACETAMINOPHEN
     Route: 065

REACTIONS (2)
  - Stoma site oedema [Unknown]
  - Stoma site haemorrhage [Unknown]

NARRATIVE: CASE EVENT DATE: 20180822
